FAERS Safety Report 16925634 (Version 1)
Quarter: 2019Q4

REPORT INFORMATION
  Report Type: Spontaneous
  Country: US (occurrence: US)
  Receive Date: 20190823
  Receipt Date: 20190823
  Transmission Date: 20200122
  Serious: No
  Sender: FDA-Public Use
  Company Number: None

PATIENT
  Sex: Female

DRUGS (1)
  1. MAKENA [Suspect]
     Active Substance: HYDROXYPROGESTERONE CAPROATE
     Indication: PREMATURE LABOUR
     Dosage: OTHER STRENGTH 275MG/1.1M
     Route: 058
     Dates: start: 20190627, end: 20190821

REACTIONS (2)
  - Maternal exposure during pregnancy [None]
  - Abortion spontaneous [None]
